FAERS Safety Report 7264702-4 (Version None)
Quarter: 2011Q1

REPORT INFORMATION
  Report Type: 
  Country: None (occurrence: None)
  Receive Date: 20110131
  Receipt Date: 20110128
  Transmission Date: 20110831
  Serious: No
  Sender: FDA-Public Use
  Company Number: US-PFIZER INC-2011020946

PATIENT
  Sex: Male

DRUGS (3)
  1. QUETIAPINE [Concomitant]
     Indication: AGITATION
  2. ZOLOFT [Suspect]
     Indication: DEPRESSION
     Dosage: 50 MG, 1X/DAY
     Route: 048
     Dates: start: 20100101
  3. QUETIAPINE [Concomitant]
     Indication: ANXIETY
     Dosage: 300 MG, 1X/DAY
     Route: 048

REACTIONS (1)
  - DRUG SCREEN POSITIVE [None]
